FAERS Safety Report 20126083 (Version 3)
Quarter: 2022Q2

REPORT INFORMATION
  Report Type: Report from Study
  Country: US (occurrence: US)
  Receive Date: 20211129
  Receipt Date: 20220418
  Transmission Date: 20220721
  Serious: Yes (Hospitalization)
  Sender: FDA-Public Use
  Company Number: US-OTSUKA-2021_029128

PATIENT
  Sex: Female

DRUGS (2)
  1. TOLVAPTAN [Suspect]
     Active Substance: TOLVAPTAN
     Indication: Congenital cystic kidney disease
     Dosage: UNK
     Route: 065
     Dates: start: 20200905
  2. TOLVAPTAN [Suspect]
     Active Substance: TOLVAPTAN
     Dosage: UNK
     Route: 065
     Dates: start: 20210809

REACTIONS (10)
  - Loss of consciousness [Unknown]
  - Urine abnormality [Unknown]
  - Eye colour change [Unknown]
  - Fluid intake reduced [Unknown]
  - Arthropod bite [Unknown]
  - Pruritus [Unknown]
  - Blood glucose increased [Unknown]
  - Blood sodium increased [Unknown]
  - Thirst [Recovering/Resolving]
  - Dehydration [Unknown]

NARRATIVE: CASE EVENT DATE: 20210819
